FAERS Safety Report 14114527 (Version 1)
Quarter: 2017Q4

REPORT INFORMATION
  Report Type: Spontaneous
  Country: US (occurrence: US)
  Receive Date: 20171023
  Receipt Date: 20171023
  Transmission Date: 20180321
  Serious: No
  Sender: FDA-Public Use
  Company Number: None

PATIENT
  Age: 53 Year
  Sex: Female
  Weight: 48.15 kg

DRUGS (2)
  1. TAXOTERE [Suspect]
     Active Substance: DOCETAXEL
     Indication: BREAST CANCER
     Dosage: ?          OTHER FREQUENCY:EVERY 3 WEEKS;?
     Route: 042
     Dates: start: 20131114, end: 20140123
  2. ANASTOZOLE [Concomitant]
     Active Substance: ANASTROZOLE

REACTIONS (5)
  - Panic reaction [None]
  - Alopecia [None]
  - Emotional distress [None]
  - Anger [None]
  - Depression [None]
